FAERS Safety Report 6682672-4 (Version None)
Quarter: 2010Q2

REPORT INFORMATION
  Report Type: 
  Country: None (occurrence: None)
  Receive Date: 20100413
  Receipt Date: 20100329
  Transmission Date: 20101027
  Serious: Yes (Hospitalization)
  Sender: FDA-Public Use
  Company Number: 2010000676

PATIENT
  Age: 74 Year
  Sex: Male

DRUGS (6)
  1. ERLOTINIB (ERLOTINIB) (TABLET) (ERLOTINIB) [Suspect]
     Indication: HEPATIC NEOPLASM MALIGNANT
     Dosage: 150 MG, QD, ORAL
     Route: 048
     Dates: start: 20100201, end: 20100208
  2. BEVACIZUMAB [Suspect]
     Indication: HEPATIC NEOPLASM MALIGNANT
     Dosage: 10 MG/KG, 2 X PER 28 DAYS, INTRAVENOUS
     Route: 042
     Dates: start: 20100201
  3. GLIPIZIDE [Concomitant]
  4. ATENOLOL [Concomitant]
  5. MAXZIDE [Concomitant]
  6. LOVENOX [Concomitant]

REACTIONS (8)
  - DEHYDRATION [None]
  - DIARRHOEA [None]
  - FLUID INTAKE REDUCED [None]
  - HYPONATRAEMIA [None]
  - PHARYNGITIS BACTERIAL [None]
  - PLEURAL EFFUSION [None]
  - RASH [None]
  - VIRAL PHARYNGITIS [None]
